FAERS Safety Report 13459547 (Version 3)
Quarter: 2018Q1

REPORT INFORMATION
  Report Type: Spontaneous
  Country: IT (occurrence: IT)
  Receive Date: 20170419
  Receipt Date: 20180220
  Transmission Date: 20180508
  Serious: Yes (Death, Hospitalization, Other)
  Sender: FDA-Public Use
  Company Number: IT-ASTRAZENECA-2017SE39848

PATIENT
  Age: 29199 Day
  Sex: Male

DRUGS (2)
  1. ZITROMAX [Concomitant]
     Active Substance: AZITHROMYCIN
  2. IRESSA [Suspect]
     Active Substance: GEFITINIB
     Indication: LUNG ADENOCARCINOMA
     Route: 048
     Dates: start: 20170306, end: 20170318

REACTIONS (2)
  - Interstitial lung disease [Fatal]
  - Acute respiratory failure [Fatal]

NARRATIVE: CASE EVENT DATE: 20170318
